FAERS Safety Report 20613326 (Version 1)
Quarter: 2022Q1

REPORT INFORMATION
  Report Type: Spontaneous
  Country: US (occurrence: US)
  Receive Date: 20220318
  Receipt Date: 20220318
  Transmission Date: 20220423
  Serious: No
  Sender: FDA-Public Use
  Company Number: US-SEPTODONT-2021006606

PATIENT

DRUGS (3)
  1. EPINEPHRINE\LIDOCAINE [Suspect]
     Active Substance: EPINEPHRINE\LIDOCAINE
     Route: 004
  2. EPINEPHRINE\LIDOCAINE [Suspect]
     Active Substance: EPINEPHRINE\LIDOCAINE
     Route: 004
  3. EPINEPHRINE\LIDOCAINE [Suspect]
     Active Substance: EPINEPHRINE\LIDOCAINE
     Dosage: 2-4 CARPULES INJECTED VIA REGULAR INFILTRATION AND NERVE BLOCK
     Route: 004

REACTIONS (1)
  - Drug ineffective [Recovered/Resolved]
